FAERS Safety Report 24890193 (Version 1)
Quarter: 2025Q1

REPORT INFORMATION
  Report Type: Spontaneous
  Country: CN (occurrence: CN)
  Receive Date: 20250127
  Receipt Date: 20250127
  Transmission Date: 20250408
  Serious: Yes (Other)
  Sender: ABBVIE
  Company Number: CN-ABBOTT-2025A-1395906

PATIENT
  Age: 19 Year
  Sex: Male

DRUGS (2)
  1. FENOFIBRATE [Suspect]
     Active Substance: FENOFIBRATE
     Indication: Lipids abnormal
     Route: 048
     Dates: start: 20210510, end: 20241226
  2. EZETIMIBE [Concomitant]
     Active Substance: EZETIMIBE
     Indication: Lipids abnormal
     Route: 048
     Dates: start: 20240325, end: 20241226

REACTIONS (1)
  - Hepatic enzyme increased [Recovering/Resolving]

NARRATIVE: CASE EVENT DATE: 20241226
